FAERS Safety Report 7215376-X (Version None)
Quarter: 2011Q1

REPORT INFORMATION
  Report Type: 
  Country: None (occurrence: None)
  Receive Date: 20110107
  Receipt Date: 20110105
  Transmission Date: 20110831
  Serious: Yes (Other)
  Sender: FDA-Public Use
  Company Number: US-PFIZER INC-2011003325

PATIENT
  Sex: Female
  Weight: 68.027 kg

DRUGS (2)
  1. SYNTHROID [Concomitant]
     Indication: HYPOTHYROIDISM
     Dosage: UNK
  2. CHANTIX [Suspect]
     Indication: SMOKING CESSATION THERAPY
     Dosage: UNK
     Route: 048
     Dates: start: 20070301, end: 20090901

REACTIONS (7)
  - SPINAL COLUMN STENOSIS [None]
  - CRYING [None]
  - SPINAL FUSION SURGERY [None]
  - INTERVERTEBRAL DISC DEGENERATION [None]
  - IRRITABILITY [None]
  - HOSTILITY [None]
  - DEPRESSION [None]
